FAERS Safety Report 25486705 (Version 1)
Quarter: 2025Q2

REPORT INFORMATION
  Report Type: Spontaneous
  Country: US (occurrence: US)
  Receive Date: 20250627
  Receipt Date: 20250627
  Transmission Date: 20250717
  Serious: No
  Sender: AMGEN
  Company Number: US-AMGEN-USASP2025123256

PATIENT
  Age: 70 Year
  Sex: Female
  Weight: 45.9 kg

DRUGS (16)
  1. REPATHA [Suspect]
     Active Substance: EVOLOCUMAB
     Indication: Blood cholesterol increased
     Dosage: 140 MILLIGRAM, Q2WK
     Route: 058
     Dates: start: 20250324
  2. ATENOLOL [Concomitant]
     Active Substance: ATENOLOL
     Dosage: 25 MILLIGRAM, TID
  3. BIOTIN [Concomitant]
     Active Substance: BIOTIN
     Dosage: 5000 MILLIGRAM, BID
  4. B12 [Concomitant]
  5. ENTRESTO [Concomitant]
     Active Substance: SACUBITRIL\VALSARTAN
  6. FAMOTIDINE [Concomitant]
     Active Substance: FAMOTIDINE
  7. FLECAINIDE [Concomitant]
     Active Substance: FLECAINIDE
     Dosage: 50 MILLIGRAM, BID
  8. FUROSEMIDE [Concomitant]
     Active Substance: FUROSEMIDE
  9. MAGNESIUM [Concomitant]
     Active Substance: MAGNESIUM
  10. PANTOPRAZOLE [Concomitant]
     Active Substance: PANTOPRAZOLE
  11. POTASSIUM [Concomitant]
     Active Substance: POTASSIUM
  12. PREMARIN [Concomitant]
     Active Substance: ESTROGENS, CONJUGATED
  13. VITAMIN C [Concomitant]
     Active Substance: ASCORBIC ACID
  14. VITAMIN D [Concomitant]
     Active Substance: VITAMIN D NOS
  15. XARELTO [Concomitant]
     Active Substance: RIVAROXABAN
  16. ZINC [Concomitant]
     Active Substance: ZINC

REACTIONS (8)
  - Injection site pain [Unknown]
  - Injection site erythema [Unknown]
  - Injection site pruritus [Unknown]
  - Injection site swelling [Unknown]
  - Diarrhoea [Unknown]
  - Dizziness [Unknown]
  - Alopecia [Unknown]
  - Weight increased [Unknown]

NARRATIVE: CASE EVENT DATE: 20250616
